FAERS Safety Report 7510158-3 (Version None)
Quarter: 2011Q2

REPORT INFORMATION
  Report Type: 
  Country: None (occurrence: None)
  Receive Date: 20110527
  Receipt Date: 20110503
  Transmission Date: 20111010
  Serious: Yes (Disabling, Other)
  Sender: FDA-Public Use
  Company Number: US-BAYER-201037024NA

PATIENT
  Age: 29 Year
  Sex: Female
  Weight: 96.145 kg

DRUGS (6)
  1. LEVOTHYROXINE SODIUM [Concomitant]
     Dosage: 175MCG
  2. YASMIN [Suspect]
     Indication: PRODUCT USED FOR UNKNOWN INDICATION
     Dosage: UNK UNK, UNK
     Route: 048
  3. YAZ [Suspect]
     Indication: PRODUCT USED FOR UNKNOWN INDICATION
     Dosage: UNK UNK, UNK
     Route: 048
  4. PHENTERMINE [Concomitant]
     Dosage: 37,5MG
  5. MERIDIA [Concomitant]
     Dosage: 15MG
  6. VYTORIN [Concomitant]
     Dosage: 10-40MG

REACTIONS (5)
  - PAIN [None]
  - BLINDNESS UNILATERAL [None]
  - EYE DISORDER [None]
  - RETINAL VEIN OCCLUSION [None]
  - GLAUCOMA [None]
